FAERS Safety Report 19266030 (Version 1)
Quarter: 2021Q2

REPORT INFORMATION
  Report Type: Spontaneous
  Country: TR (occurrence: TR)
  Receive Date: 20210517
  Receipt Date: 20210517
  Transmission Date: 20210717
  Serious: Yes (Other)
  Sender: FDA-Public Use
  Company Number: TR-INCYTE CORPORATION-2021IN004222

PATIENT

DRUGS (1)
  1. JAKAVI [Suspect]
     Active Substance: RUXOLITINIB
     Indication: MYELOFIBROSIS
     Dosage: 20 MG
     Route: 065

REACTIONS (3)
  - Arrhythmia [Unknown]
  - Drug level increased [Unknown]
  - Drug interaction [Unknown]
